FAERS Safety Report 4780316-X (Version None)
Quarter: 2005Q3

REPORT INFORMATION
  Report Type: 
  Country: None (occurrence: None)
  Receive Date: 20050926
  Receipt Date: 20050926
  Transmission Date: 20060218
  Serious: Yes (Hospitalization)
  Sender: FDA-Public Use
  Company Number: None

PATIENT
  Sex: Male
  Weight: 75 kg

DRUGS (1)
  1. PAXIL [Suspect]
     Indication: DEPRESSION
     Dosage: 20MG DAILY PO
     Route: 048
     Dates: start: 20031101, end: 20050925

REACTIONS (15)
  - AGGRESSION [None]
  - AGITATION [None]
  - ALCOHOLISM [None]
  - ANGER [None]
  - CARBON MONOXIDE POISONING [None]
  - DEPRESSION [None]
  - HEADACHE [None]
  - HOSTILITY [None]
  - MANIA [None]
  - NAUSEA [None]
  - NERVOUS SYSTEM DISORDER [None]
  - PAIN [None]
  - STRESS [None]
  - SUICIDAL IDEATION [None]
  - SUICIDE ATTEMPT [None]
